FAERS Safety Report 23525879 (Version 1)
Quarter: 2024Q1

REPORT INFORMATION
  Report Type: Spontaneous
  Country: ES (occurrence: ES)
  Receive Date: 20240215
  Receipt Date: 20240215
  Transmission Date: 20240409
  Serious: Yes (Hospitalization)
  Sender: FDA-Public Use
  Company Number: None

PATIENT
  Age: 64 Year
  Sex: Female

DRUGS (6)
  1. TERIFLUNOMIDE [Suspect]
     Active Substance: TERIFLUNOMIDE
     Indication: Multiple sclerosis
     Route: 048
     Dates: start: 20210217, end: 20230720
  2. OMEPRAZOLE VIATRIS [Concomitant]
     Indication: Dyspepsia
     Dosage: 20 MG GASTRORE-RESISTANT HARD CAPSULES EFG, 56 CAPSULES (BOTTLE)
     Route: 048
     Dates: start: 20091205
  3. DOLOCATYL CODEINE [Concomitant]
     Indication: Headache
     Route: 048
     Dates: start: 20230711
  4. AMITRIPTYLINE HYDROCHLORIDE [Concomitant]
     Active Substance: AMITRIPTYLINE HYDROCHLORIDE
     Indication: Migraine
     Route: 048
     Dates: start: 20101115
  5. MAXALT MAX [Concomitant]
     Indication: Migraine without aura
     Route: 048
     Dates: start: 20140129
  6. BISOPROLOL [Concomitant]
     Active Substance: BISOPROLOL\BISOPROLOL FUMARATE
     Indication: Hypertension
     Route: 048
     Dates: start: 20150320

REACTIONS (1)
  - Anaemia [Recovered/Resolved]

NARRATIVE: CASE EVENT DATE: 20230717
